FAERS Safety Report 21824228 (Version 1)
Quarter: 2023Q1

REPORT INFORMATION
  Report Type: Spontaneous
  Country: US (occurrence: None)
  Receive Date: 20230104
  Receipt Date: 20230104
  Transmission Date: 20230417
  Serious: Yes (Hospitalization)
  Sender: FDA-Public Use
  Company Number: None

PATIENT
  Age: 60 Year
  Sex: Female
  Weight: 71.49 kg

DRUGS (27)
  1. LENALIDOMIDE [Suspect]
     Active Substance: LENALIDOMIDE
     Indication: Plasma cell myeloma
     Dosage: FREQUENCY : DAILY;?
     Route: 048
  2. ACYCLOVIR [Concomitant]
  3. AIMOVIG [Concomitant]
  4. ALBUTEROL [Concomitant]
  5. ATORVASTATIN [Concomitant]
  6. BACLOFEN [Concomitant]
     Active Substance: BACLOFEN
  7. BUSPIRONE [Concomitant]
  8. CEFPODOIME [Concomitant]
  9. CETIRIZINE [Concomitant]
  10. DEXAMETHASONE [Concomitant]
  11. DICLOFENAC [Concomitant]
  12. DOXYCYCLINE [Concomitant]
  13. DULOXETINE [Concomitant]
  14. FLUTICASONE [Concomitant]
  15. FOLIC ACID [Concomitant]
  16. NORCO [Concomitant]
  17. LIDOCAINE [Concomitant]
  18. METOPROLOL [Concomitant]
     Active Substance: METOPROLOL
  19. MIRTAZAPINE [Concomitant]
  20. MUCINEX [Concomitant]
  21. ONDANSETRON [Concomitant]
  22. PANTOPRAZOLE [Concomitant]
  23. PROCHLORPERAZINE [Concomitant]
  24. PROMETHAZINE [Concomitant]
  25. RESTASIS [Concomitant]
  26. SEREVENT DISKUS [Concomitant]
  27. VERAPAMIL [Concomitant]

REACTIONS (1)
  - Pneumonia [None]
